FAERS Safety Report 11299961 (Version 1)
Quarter: 2015Q3

REPORT INFORMATION
  Report Type: Spontaneous
  Country: US (occurrence: US)
  Receive Date: 20150722
  Receipt Date: 20150722
  Transmission Date: 20151125
  Serious: No
  Sender: FDA-Public Use
  Company Number: US-ELI_LILLY_AND_COMPANY-US201303000243

PATIENT
  Sex: Female

DRUGS (4)
  1. ALEVE [Concomitant]
     Active Substance: NAPROXEN SODIUM
  2. HUMATROPE [Suspect]
     Active Substance: SOMATROPIN
     Dosage: UNK
  3. SYNTHROID [Concomitant]
     Active Substance: LEVOTHYROXINE SODIUM
  4. HUMATROPE [Suspect]
     Active Substance: SOMATROPIN
     Indication: GROWTH HORMONE DEFICIENCY
     Dosage: 0.2 MG, 7 TIMES PER WEEK
     Dates: start: 20130124

REACTIONS (12)
  - Joint stiffness [Unknown]
  - Pharyngeal oedema [Unknown]
  - Alopecia [Unknown]
  - Nausea [Unknown]
  - Neck pain [Unknown]
  - Chest pain [Unknown]
  - Contusion [Unknown]
  - Headache [Unknown]
  - Weight increased [Unknown]
  - Myalgia [Unknown]
  - Arthralgia [Unknown]
  - Vision blurred [Unknown]
